FAERS Safety Report 7820769-3 (Version None)
Quarter: 2011Q4

REPORT INFORMATION
  Report Type: 
  Country: None (occurrence: None)
  Receive Date: 20111018
  Receipt Date: 20111006
  Transmission Date: 20120403
  Serious: Yes (Life-Threatening, Hospitalization)
  Sender: FDA-Public Use
  Company Number: US-BAYER-201040878NA

PATIENT
  Age: 24 Year
  Sex: Female
  Weight: 65.76 kg

DRUGS (5)
  1. FLONASE [Concomitant]
     Indication: MULTIPLE ALLERGIES
     Route: 055
  2. ZOMIG [Concomitant]
     Dosage: AS NEEDED
  3. AMITRIPTYLINE HCL [Concomitant]
     Indication: AFFECTIVE DISORDER
     Route: 048
  4. PLAVIX [Concomitant]
  5. YAZ [Suspect]
     Indication: CONTRACEPTION
     Dosage: UNK
     Route: 048
     Dates: start: 20070101, end: 20080101

REACTIONS (3)
  - TRANSIENT ISCHAEMIC ATTACK [None]
  - VASCULAR ENCEPHALOPATHY [None]
  - ISCHAEMIC STROKE [None]
